FAERS Safety Report 8034573-7 (Version None)
Quarter: 2012Q1

REPORT INFORMATION
  Report Type: 
  Country: None (occurrence: None)
  Receive Date: 20120110
  Receipt Date: 20120106
  Transmission Date: 20120608
  Serious: Yes (Other)
  Sender: FDA-Public Use
  Company Number: US-GILEAD-2011-0048083

PATIENT
  Sex: Male

DRUGS (1)
  1. TRUVADA [Suspect]
     Indication: HIV INFECTION
     Dosage: UNK

REACTIONS (9)
  - NERVOUS SYSTEM DISORDER [None]
  - IRRITABILITY [None]
  - DYSPHORIA [None]
  - DIZZINESS [None]
  - SUICIDAL IDEATION [None]
  - MALAISE [None]
  - TIC [None]
  - MUSCULOSKELETAL STIFFNESS [None]
  - ILLUSION [None]
